FAERS Safety Report 7494675-0 (Version None)
Quarter: 2011Q2

REPORT INFORMATION
  Report Type: 
  Country: None (occurrence: None)
  Receive Date: 20110520
  Receipt Date: 20110502
  Transmission Date: 20111010
  Serious: Yes (Hospitalization, Other)
  Sender: FDA-Public Use
  Company Number: US-BAYER-201034720NA

PATIENT
  Age: 18 Year
  Sex: Female
  Weight: 49.887 kg

DRUGS (4)
  1. LORTAB [Concomitant]
     Dosage: UNK UNK, BID
  2. LEXAPRO [Concomitant]
     Dosage: 10 MG, QD
  3. PHENERGAN HCL [Concomitant]
     Dosage: 12.5 MG, QID
  4. YAZ [Suspect]
     Indication: CONTRACEPTION
     Route: 048

REACTIONS (3)
  - PAIN [None]
  - SUBCLAVIAN VEIN THROMBOSIS [None]
  - EMOTIONAL DISTRESS [None]
